FAERS Safety Report 9311241 (Version 1)
Quarter: 2013Q2

REPORT INFORMATION
  Report Type: Spontaneous
  Country: FR (occurrence: FR)
  Receive Date: 20130528
  Receipt Date: 20130528
  Transmission Date: 20140414
  Serious: Yes (Other)
  Sender: FDA-Public Use
  Company Number: FR-UCBSA-086331

PATIENT
  Sex: Female

DRUGS (1)
  1. CIMZIA [Suspect]
     Route: 058

REACTIONS (1)
  - Angioedema [Unknown]
